FAERS Safety Report 7715886-2 (Version None)
Quarter: 2011Q3

REPORT INFORMATION
  Report Type: 
  Country: None (occurrence: None)
  Receive Date: 20110829
  Receipt Date: 20110829
  Transmission Date: 20111222
  Serious: No
  Sender: FDA-Public Use
  Company Number: None

PATIENT
  Age: 49 Year
  Sex: Female
  Weight: 65.77 kg

DRUGS (1)
  1. LISINOPRIL [Suspect]
     Indication: HYPERTENSION
     Dosage: 10
     Dates: start: 20101101, end: 20101125

REACTIONS (12)
  - DIARRHOEA [None]
  - ASTHENIA [None]
  - FATIGUE [None]
  - NAUSEA [None]
  - PRESYNCOPE [None]
  - MYALGIA [None]
  - FLUSHING [None]
  - TREMOR [None]
  - DECREASED APPETITE [None]
  - VOMITING [None]
  - SKIN DISCOLOURATION [None]
  - LUPUS-LIKE SYNDROME [None]
